FAERS Safety Report 18774851 (Version 1)
Quarter: 2021Q1

REPORT INFORMATION
  Report Type: Spontaneous
  Country: US (occurrence: US)
  Receive Date: 20210122
  Receipt Date: 20210122
  Transmission Date: 20210419
  Serious: Yes (Other)
  Sender: FDA-Public Use
  Company Number: US-PURDUE-USA-2020-0197225

PATIENT
  Sex: Male

DRUGS (4)
  1. OXYCONTIN [Suspect]
     Active Substance: OXYCODONE HYDROCHLORIDE
     Indication: AMPUTATION STUMP PAIN
     Dosage: UNK
     Route: 048
     Dates: start: 200908
  2. OXYCODONE HCL CR TABLETS (SIMILAR TO NDA 22?272) [Suspect]
     Active Substance: OXYCODONE HYDROCHLORIDE
     Indication: AMPUTATION STUMP PAIN
     Dosage: UNK
     Route: 048
     Dates: start: 200908
  3. DILAUDID [Suspect]
     Active Substance: HYDROMORPHONE HYDROCHLORIDE
     Indication: AMPUTATION STUMP PAIN
     Dosage: UNK
     Route: 048
     Dates: start: 200908
  4. OXYCODONE HCL TABLETS (RHODES 91?490) [Suspect]
     Active Substance: OXYCODONE HYDROCHLORIDE
     Indication: AMPUTATION STUMP PAIN
     Dosage: UNK
     Route: 048
     Dates: start: 200908

REACTIONS (4)
  - Road traffic accident [Unknown]
  - Drug dependence [Unknown]
  - Product prescribing issue [Unknown]
  - Overdose [Unknown]
